FAERS Safety Report 8213302-8 (Version None)
Quarter: 2012Q1

REPORT INFORMATION
  Report Type: 
  Country: None (occurrence: None)
  Receive Date: 20120315
  Receipt Date: 20120312
  Transmission Date: 20120608
  Serious: Yes (Hospitalization)
  Sender: FDA-Public Use
  Company Number: PHHO2006FI21745

PATIENT
  Sex: Male
  Weight: 78 kg

DRUGS (3)
  1. ZOLEDRONOC ACID [Suspect]
     Indication: METASTASES TO BONE
     Dosage: 4MG EVERY 3 MONTHS
     Route: 042
     Dates: start: 20050118, end: 20060920
  2. VITAMIN D [Concomitant]
  3. CALCIUM [Concomitant]

REACTIONS (4)
  - BONE LESION [None]
  - OSTEONECROSIS OF JAW [None]
  - PAIN IN JAW [None]
  - GINGIVAL INFECTION [None]
